FAERS Safety Report 5092469-7 (Version None)
Quarter: 2006Q3

REPORT INFORMATION
  Report Type: 
  Country: None (occurrence: None)
  Receive Date: 20060822
  Receipt Date: 20060807
  Transmission Date: 20061208
  Serious: Yes (Other)
  Sender: FDA-Public Use
  Company Number: 2006BH010649

PATIENT
  Sex: Female

DRUGS (1)
  1. BUMINATE 5% [Suspect]
     Indication: PLASMAPHERESIS

REACTIONS (1)
  - HEPATITIS C [None]
